FAERS Safety Report 19480098 (Version 1)
Quarter: 2021Q2

REPORT INFORMATION
  Report Type: Spontaneous
  Country: US (occurrence: US)
  Receive Date: 20210630
  Receipt Date: 20210630
  Transmission Date: 20210717
  Serious: No
  Sender: FDA-Public Use
  Company Number: US-FOUNDATIONCONSUMERHC-2021-US-000536

PATIENT
  Age: 20 Year
  Sex: Female
  Weight: 45.36 kg

DRUGS (4)
  1. LIQUID COLLAGEN [Concomitant]
  2. PLAN B ONE?STEP [Suspect]
     Active Substance: LEVONORGESTREL
     Indication: POST COITAL CONTRACEPTION
     Dosage: 1.5 MG
     Route: 048
     Dates: start: 20201124, end: 20201124
  3. CRANBERRY PILL [Concomitant]
     Active Substance: CRANBERRY
  4. WOMAN MULTIVITAMIN [Concomitant]

REACTIONS (2)
  - Menstruation irregular [Not Recovered/Not Resolved]
  - Vaginal haemorrhage [Recovered/Resolved]

NARRATIVE: CASE EVENT DATE: 202012
